FAERS Safety Report 17575482 (Version 1)
Quarter: 2020Q1

REPORT INFORMATION
  Report Type: Report from Study
  Country: None (occurrence: IT)
  Receive Date: 20200324
  Receipt Date: 20200324
  Transmission Date: 20200409
  Serious: Yes (Death)
  Sender: FDA-Public Use
  Company Number: IT-ABBVIE-20K-083-3333082-00

PATIENT
  Age: 67 Year
  Sex: Female

DRUGS (1)
  1. DUODOPA [Suspect]
     Active Substance: CARBIDOPA\LEVODOPA
     Indication: PARKINSON^S DISEASE
     Dosage: MD: 6+3??CR: 2,9 (14H)??ED: 1,8
     Route: 050
     Dates: start: 20161122, end: 20200313

REACTIONS (2)
  - Corona virus infection [Fatal]
  - Respiratory disorder [Fatal]

NARRATIVE: CASE EVENT DATE: 202003
